FAERS Safety Report 20857644 (Version 1)
Quarter: 2022Q2

REPORT INFORMATION
  Report Type: Spontaneous
  Country: US (occurrence: US)
  Receive Date: 20220521
  Receipt Date: 20220521
  Transmission Date: 20220720
  Serious: No
  Sender: FDA-Public Use
  Company Number: US-BRISTOL-MYERS SQUIBB COMPANY-2022-028507

PATIENT
  Age: 79 Year
  Sex: Female

DRUGS (1)
  1. REVLIMID [Suspect]
     Active Substance: LENALIDOMIDE
     Indication: Plasma cell myeloma
     Dosage: TAKES REVLIMID FOR 21 DAYS ON AND 7 DAYS OFF.
     Route: 048
     Dates: start: 202201

REACTIONS (2)
  - Mouth ulceration [Unknown]
  - Oral pain [Unknown]
